FAERS Safety Report 4434082-8 (Version None)
Quarter: 2004Q3

REPORT INFORMATION
  Report Type: 
  Country: None (occurrence: None)
  Receive Date: 20040825
  Receipt Date: 20040810
  Transmission Date: 20050211
  Serious: Yes (Hospitalization, Other)
  Sender: FDA-Public Use
  Company Number: USA040568397

PATIENT
  Age: 78 Year
  Sex: Male
  Weight: 85 kg

DRUGS (5)
  1. HUMULIN N [Suspect]
     Indication: DIABETES MELLITUS
     Dosage: 40 U DAY
  2. HUMULIN 70/30 [Suspect]
     Indication: DIABETES MELLITUS
     Dosage: 30 U DAY
  3. COUMADIN [Concomitant]
  4. GLUCOTROL XL [Concomitant]
  5. GLUCOPHAGE [Concomitant]

REACTIONS (20)
  - ANGINA PECTORIS [None]
  - ANXIETY [None]
  - ARTHRALGIA [None]
  - CARDIAC DISORDER [None]
  - CORONARY ARTERIAL STENT INSERTION [None]
  - DIABETES MELLITUS INADEQUATE CONTROL [None]
  - DIFFICULTY IN WALKING [None]
  - FEELING ABNORMAL [None]
  - FEELING JITTERY [None]
  - FOOT FRACTURE [None]
  - IMPAIRED DRIVING ABILITY [None]
  - MEDICATION ERROR [None]
  - NERVOUSNESS [None]
  - NEUROPATHY [None]
  - OEDEMA PERIPHERAL [None]
  - POST PROCEDURAL COMPLICATION [None]
  - SECRETION DISCHARGE [None]
  - SOMNOLENCE [None]
  - TREATMENT NONCOMPLIANCE [None]
  - WEIGHT INCREASED [None]
